FAERS Safety Report 9194795 (Version 1)
Quarter: 2013Q1

REPORT INFORMATION
  Report Type: Spontaneous
  Country: US (occurrence: US)
  Receive Date: 20130328
  Receipt Date: 20130328
  Transmission Date: 20140127
  Serious: No
  Sender: FDA-Public Use
  Company Number: US-ALLERGAN-1217794US

PATIENT
  Age: 58 Year
  Sex: Female

DRUGS (5)
  1. LATISSE 0.03% [Suspect]
     Indication: GROWTH OF EYELASHES
     Dosage: 2 GTT, BID
     Route: 061
  2. LATISSE 0.03% [Suspect]
     Dosage: 2 GTT, QHS
     Route: 061
     Dates: start: 201211
  3. OTC EYEDROPS NOS [Concomitant]
     Indication: EYE LUBRICATION THERAPY
     Dosage: 2 GTT, PRN
     Route: 047
  4. VIVELLE DOT [Concomitant]
     Indication: HORMONE REPLACEMENT THERAPY
     Dosage: UNK UNK, Q WEEK
     Route: 061
     Dates: start: 2002
  5. RESTASIS? [Concomitant]
     Indication: DRY EYE
     Dosage: 2 GTT, UNK
     Route: 047
     Dates: start: 2010

REACTIONS (4)
  - Inappropriate schedule of drug administration [Unknown]
  - Expired drug administered [Unknown]
  - Inappropriate schedule of drug administration [Unknown]
  - Drug ineffective [Unknown]
